FAERS Safety Report 9025412 (Version 1)
Quarter: 2013Q1

REPORT INFORMATION
  Report Type: Spontaneous
  Country: CA (occurrence: CA)
  Receive Date: 20130122
  Receipt Date: 20130122
  Transmission Date: 20140127
  Serious: No
  Sender: FDA-Public Use
  Company Number: CA-OPTIMER PHARMACEUTICALS, INC.-20120120

PATIENT
  Sex: 0

DRUGS (1)
  1. DIFICID [Suspect]
     Indication: CLOSTRIDIAL INFECTION
     Dosage: ^200^, BID
     Route: 048

REACTIONS (3)
  - Gastrointestinal disorder [Unknown]
  - Dehydration [Unknown]
  - Diarrhoea [Unknown]
